FAERS Safety Report 6087027-1 (Version None)
Quarter: 2009Q1

REPORT INFORMATION
  Report Type: 
  Country: None (occurrence: None)
  Receive Date: 20090223
  Receipt Date: 20090213
  Transmission Date: 20090719
  Serious: Yes (Disabling, Other)
  Sender: FDA-Public Use
  Company Number: PHEH2008US07421

PATIENT
  Sex: Female
  Weight: 40.816 kg

DRUGS (10)
  1. RECLAST [Suspect]
     Indication: OSTEOPOROSIS
     Dosage: UNK
     Dates: start: 20080301
  2. ASPIRIN [Concomitant]
     Dosage: 325 MG, QD
     Route: 048
  3. PREDNISONE [Concomitant]
     Dosage: 5 MG, QD
     Route: 048
  4. AMBIEN [Concomitant]
     Dosage: 10 MG, QHS
     Route: 048
  5. SPIRIVA [Concomitant]
  6. STOOL SOFTENER [Concomitant]
     Dosage: 1 DF, QD
  7. LORA TAB [Concomitant]
     Dosage: 10/500MG, 1/2 TAB BID
  8. ACIPHEX [Concomitant]
     Dosage: 20 MG, QD
     Route: 048
  9. REMERON [Concomitant]
     Dosage: 10 MG, QHS
  10. MIRALAX [Concomitant]

REACTIONS (17)
  - ALBUMIN GLOBULIN RATIO [None]
  - ALPHA 2 GLOBULIN INCREASED [None]
  - ARTHRALGIA [None]
  - BEDRIDDEN [None]
  - BLOOD ALBUMIN INCREASED [None]
  - BLOOD GLUCOSE INCREASED [None]
  - BLOOD PRESSURE DECREASED [None]
  - BONE PAIN [None]
  - BRONCHITIS [None]
  - CARBON DIOXIDE INCREASED [None]
  - COUGH [None]
  - MYALGIA [None]
  - NAUSEA [None]
  - OEDEMA PERIPHERAL [None]
  - OXYGEN SATURATION DECREASED [None]
  - RHONCHI [None]
  - VOMITING [None]
